FAERS Safety Report 10548296 (Version 1)
Quarter: 2014Q4

REPORT INFORMATION
  Report Type: Other
  Country: US (occurrence: US)
  Receive Date: 20141028
  Receipt Date: 20141028
  Transmission Date: 20150529
  Serious: Yes (Hospitalization, Other)
  Sender: FDA-Public Use
  Company Number: US-SHIRE-US201407135

PATIENT
  Sex: Male

DRUGS (1)
  1. FIRAZYR [Suspect]
     Active Substance: ICATIBANT ACETATE
     Indication: HEREDITARY ANGIOEDEMA
     Dosage: 3 ML, UNKNOWN
     Route: 058
     Dates: start: 201410

REACTIONS (4)
  - Dyspnoea [Unknown]
  - Malaise [Unknown]
  - Myocardial infarction [Recovered/Resolved]
  - Localised oedema [Recovering/Resolving]

NARRATIVE: CASE EVENT DATE: 2014
